FAERS Safety Report 9056210 (Version 4)
Quarter: 2013Q1

REPORT INFORMATION
  Report Type: Report from Study
  Country: US (occurrence: US)
  Receive Date: 20130205
  Receipt Date: 20130326
  Transmission Date: 20140127
  Serious: Yes (Death, Hospitalization, Other)
  Sender: FDA-Public Use
  Company Number: US-ABBOTT-13P-163-1044559-00

PATIENT
  Age: 73 None
  Sex: Male

DRUGS (5)
  1. HUMIRA [Suspect]
     Indication: RHEUMATOID ARTHRITIS
     Route: 058
  2. HUMIRA [Suspect]
     Route: 058
     Dates: end: 20130129
  3. LEFLUNOMIDE [Concomitant]
     Indication: PRODUCT USED FOR UNKNOWN INDICATION
  4. PREDNISONE [Concomitant]
     Indication: PRODUCT USED FOR UNKNOWN INDICATION
  5. IMURAN [Concomitant]
     Indication: PRODUCT USED FOR UNKNOWN INDICATION

REACTIONS (11)
  - Interstitial lung disease [Fatal]
  - Cardiac failure congestive [Fatal]
  - Renal failure [Fatal]
  - Pulmonary oedema [Unknown]
  - Pneumonia [Recovered/Resolved]
  - Pulmonary fibrosis [Unknown]
  - Pulmonary hypertension [Not Recovered/Not Resolved]
  - Lung infiltration [Recovered/Resolved]
  - Clostridium difficile infection [Recovered/Resolved]
  - Atrial fibrillation [Not Recovered/Not Resolved]
  - Atrial fibrillation [Unknown]
